FAERS Safety Report 11524995 (Version 2)
Quarter: 2015Q3

REPORT INFORMATION
  Report Type: Spontaneous
  Country: NO (occurrence: NO)
  Receive Date: 20150918
  Receipt Date: 20150929
  Transmission Date: 20151125
  Serious: Yes (Life-Threatening)
  Sender: FDA-Public Use
  Company Number: PHHY2015NO111037

PATIENT
  Age: 64 Year
  Sex: Female

DRUGS (5)
  1. EPIRUBICIN [Concomitant]
     Active Substance: EPIRUBICIN
     Indication: BREAST CANCER METASTATIC
     Dosage: 1945 MG, UNK
     Route: 065
     Dates: start: 1997, end: 2013
  2. FLUOROURACIL. [Concomitant]
     Active Substance: FLUOROURACIL
     Indication: BREAST CANCER METASTATIC
     Dosage: UNK
     Route: 065
     Dates: start: 1997, end: 2013
  3. AROMASIN [Concomitant]
     Active Substance: EXEMESTANE
     Indication: PRODUCT USED FOR UNKNOWN INDICATION
     Route: 065
  4. AFINITOR [Suspect]
     Active Substance: EVEROLIMUS
     Indication: BREAST CANCER METASTATIC
     Dosage: 10 MG, QD
     Route: 065
     Dates: start: 20150123, end: 20150414
  5. CYCLOPHOSPHAMIDE. [Concomitant]
     Active Substance: CYCLOPHOSPHAMIDE
     Indication: BREAST CANCER METASTATIC
     Dosage: UNK
     Route: 065
     Dates: start: 1997, end: 2013

REACTIONS (2)
  - Tongue ulceration [Recovered/Resolved with Sequelae]
  - Squamous cell carcinoma of the tongue [Recovered/Resolved with Sequelae]

NARRATIVE: CASE EVENT DATE: 2015
